FAERS Safety Report 8274342-6 (Version None)
Quarter: 2012Q2

REPORT INFORMATION
  Report Type: 
  Country: None (occurrence: None)
  Receive Date: 20120411
  Receipt Date: 20120402
  Transmission Date: 20120825
  Serious: Yes (Hospitalization)
  Sender: FDA-Public Use
  Company Number: FR-ASTRAZENECA-2012SE16633

PATIENT
  Age: 1052 Month
  Sex: Male

DRUGS (8)
  1. ANAGRELIDE HYDROCHLORIDE [Suspect]
     Indication: ESSENTIAL THROMBOCYTHAEMIA
     Route: 048
     Dates: start: 20080101
  2. FOLIC ACID [Suspect]
     Route: 048
  3. FUROSEMIDE [Suspect]
     Route: 048
  4. RAMIPRIL [Suspect]
     Route: 048
  5. NEORECORMON [Suspect]
     Route: 058
  6. FUROSEMIDE [Suspect]
     Route: 048
  7. NEXIUM [Suspect]
     Indication: DUODENAL ULCER
     Route: 048
  8. ASPIRIN [Suspect]
     Route: 048

REACTIONS (6)
  - TRAUMATIC HAEMATOMA [None]
  - ARRHYTHMIA [None]
  - FALL [None]
  - CARDIAC FAILURE [None]
  - ATRIAL FIBRILLATION [None]
  - SYNCOPE [None]
